FAERS Safety Report 12123784 (Version 1)
Quarter: 2016Q1

REPORT INFORMATION
  Report Type: Report from Study
  Country: JP (occurrence: JP)
  Receive Date: 20160227
  Receipt Date: 20160227
  Transmission Date: 20160526
  Serious: Yes (Death, Hospitalization)
  Sender: FDA-Public Use
  Company Number: JP-B.I. PHARMACEUTICALS,INC./RIDGEFIELD-2015-BI-10620NB

PATIENT
  Age: 70 Year
  Sex: Female
  Weight: 32 kg

DRUGS (8)
  1. CELECOX [Concomitant]
     Active Substance: CELECOXIB
     Indication: PAIN
     Dosage: 400 MG
     Route: 048
     Dates: end: 20150305
  2. MINOMYCIN [Concomitant]
     Active Substance: MINOCYCLINE HYDROCHLORIDE
     Indication: PROPHYLAXIS
     Dosage: 200 MG
     Route: 048
     Dates: start: 20150127, end: 20150305
  3. LOCOID [Concomitant]
     Active Substance: HYDROCORTISONE BUTYRATE
     Indication: PROPHYLAXIS
     Route: 065
     Dates: start: 20150127, end: 20150307
  4. FENTOS [Concomitant]
     Active Substance: FENTANYL
     Indication: PAIN
     Dosage: 1 MG
     Route: 065
     Dates: end: 20150307
  5. MIYA-BM [Concomitant]
     Active Substance: CLOSTRIDIUM BUTYRICUM SPORES STRAIN M-55
     Indication: PROPHYLAXIS
     Dosage: 3 G
     Route: 048
     Dates: start: 20150127, end: 20150305
  6. HIRUDOID [Concomitant]
     Active Substance: GLYCOSAMINOGLYCANS
     Indication: PROPHYLAXIS
     Route: 065
     Dates: start: 20150127, end: 20150307
  7. NIZORAL [Concomitant]
     Active Substance: KETOCONAZOLE
     Indication: PROPHYLAXIS
     Route: 065
     Dates: start: 20150127, end: 20150307
  8. GILOTRIF [Suspect]
     Active Substance: AFATINIB
     Indication: LUNG ADENOCARCINOMA
     Dosage: 30 MG
     Route: 048
     Dates: start: 20150127, end: 20150219

REACTIONS (1)
  - Pneumonitis [Fatal]

NARRATIVE: CASE EVENT DATE: 20150219
